FAERS Safety Report 11934013 (Version 1)
Quarter: 2016Q1

REPORT INFORMATION
  Report Type: Spontaneous
  Country: US (occurrence: None)
  Receive Date: 20160120
  Receipt Date: 20160120
  Transmission Date: 20160526
  Serious: No
  Sender: FDA-Public Use
  Company Number: None

PATIENT
  Age: 68 Year
  Sex: Female

DRUGS (3)
  1. ASPIRIN. [Concomitant]
     Active Substance: ASPIRIN
  2. IBRANCE [Suspect]
     Active Substance: PALBOCICLIB
     Indication: DRUG THERAPY
     Dosage: 125MG DAILY FOR 21 DAYS PO
     Dates: start: 20150731
  3. AZITHROMYCIN ANHYDROUS. [Concomitant]
     Active Substance: AZITHROMYCIN ANHYDROUS

REACTIONS (2)
  - Skin exfoliation [None]
  - Dry skin [None]

NARRATIVE: CASE EVENT DATE: 201512
